FAERS Safety Report 24573043 (Version 3)
Quarter: 2025Q1

REPORT INFORMATION
  Report Type: Spontaneous
  Country: US (occurrence: US)
  Receive Date: 20241101
  Receipt Date: 20250302
  Transmission Date: 20250409
  Serious: Yes (Hospitalization)
  Sender: NOVO NORDISK
  Company Number: US-NOVOPROD-1308391

PATIENT
  Age: 77 Year
  Sex: Female
  Weight: 99.32 kg

DRUGS (2)
  1. OZEMPIC [Suspect]
     Active Substance: SEMAGLUTIDE
     Indication: Type 2 diabetes mellitus
     Dosage: 0.25 MG, QW
     Route: 058
     Dates: start: 202406, end: 202408
  2. METFORMIN HYDROCHLORIDE [Concomitant]
     Active Substance: METFORMIN HYDROCHLORIDE
     Indication: Type 2 diabetes mellitus
     Dosage: 500 MG, QD
     Route: 048

REACTIONS (7)
  - Dysstasia [Unknown]
  - Cardiac disorder [Recovered/Resolved]
  - Renal impairment [Not Recovered/Not Resolved]
  - Vomiting projectile [Recovered/Resolved]
  - Allergic cough [Recovered/Resolved]
  - Nasopharyngitis [Unknown]
  - Inappropriate schedule of product administration [Recovered/Resolved]

NARRATIVE: CASE EVENT DATE: 20240701
